FAERS Safety Report 6870173-X (Version None)
Quarter: 2010Q3

REPORT INFORMATION
  Report Type: 
  Country: None (occurrence: None)
  Receive Date: 20100722
  Receipt Date: 20100709
  Transmission Date: 20110219
  Serious: Yes (Other)
  Sender: FDA-Public Use
  Company Number: PHHY2009JP30124

PATIENT
  Age: 39 Year
  Sex: Male

DRUGS (6)
  1. NEORAL [Suspect]
     Indication: RENAL TRANSPLANT
     Dosage: UNK
     Route: 048
     Dates: start: 20090702, end: 20090803
  2. PREDONINE [Suspect]
     Dosage: UNK
     Dates: start: 20090708
  3. BREDININ [Concomitant]
     Dosage: UNK
     Dates: start: 20090702
  4. NORVASC [Concomitant]
     Route: 048
  5. ATELEC [Concomitant]
  6. ARTIST [Concomitant]

REACTIONS (8)
  - BLOOD CREATININE INCREASED [None]
  - BLOOD URIC ACID INCREASED [None]
  - DIABETIC ENTEROPATHY [None]
  - HYPERTENSION [None]
  - IMMUNOSUPPRESSANT DRUG LEVEL INCREASED [None]
  - MALABSORPTION [None]
  - NEPHROPATHY TOXIC [None]
  - URINE OUTPUT DECREASED [None]
